FAERS Safety Report 15299460 (Version 1)
Quarter: 2018Q3

REPORT INFORMATION
  Report Type: Spontaneous
  Country: US (occurrence: US)
  Receive Date: 20180821
  Receipt Date: 20180821
  Transmission Date: 20181010
  Serious: No
  Sender: FDA-Public Use
  Company Number: US-CELGENEUS-USA-20180804955

PATIENT
  Sex: Female
  Weight: 108 kg

DRUGS (3)
  1. ABRAXANE [Suspect]
     Active Substance: PACLITAXEL
     Indication: BREAST CANCER
     Dosage: 170 MILLIGRAM
     Route: 042
     Dates: start: 20180329
  2. ABRAXANE [Suspect]
     Active Substance: PACLITAXEL
     Dosage: 240 MILLIGRAM
     Route: 042
     Dates: start: 2018
  3. ABRAXANE [Suspect]
     Active Substance: PACLITAXEL
     Dosage: REDUCED DOSE
     Route: 042
     Dates: start: 2018

REACTIONS (1)
  - Adverse event [Unknown]

NARRATIVE: CASE EVENT DATE: 2018
